FAERS Safety Report 9934145 (Version 9)
Quarter: 2014Q4

REPORT INFORMATION
  Report Type: Report from Study
  Country: TR (occurrence: TR)
  Receive Date: 20140228
  Receipt Date: 20141126
  Transmission Date: 20150529
  Serious: Yes (Death, Hospitalization)
  Sender: FDA-Public Use
  Company Number: TR-BAYER-2014-013489

PATIENT
  Age: 48 Year
  Sex: Female
  Weight: 47 kg

DRUGS (11)
  1. METPAMID [Concomitant]
     Indication: DECREASED APPETITE
     Dosage: 10MG DAILY
     Route: 042
     Dates: start: 20140220, end: 20140223
  2. PRIMPERAN [Concomitant]
     Active Substance: METOCLOPRAMIDE HYDROCHLORIDE
     Dosage: AMP (12 PCS)
     Dates: start: 20140220
  3. CIPRO [Concomitant]
     Active Substance: CIPROFLOXACIN HYDROCHLORIDE
     Indication: CYSTITIS
     Dosage: 500MG
     Route: 048
     Dates: start: 20140210, end: 20140215
  4. KYTRIL [Concomitant]
     Active Substance: GRANISETRON HYDROCHLORIDE
     Indication: DECREASED APPETITE
     Dosage: 1MG DAILY
     Route: 042
     Dates: start: 20140220, end: 20140223
  5. REGORAFENIB [Suspect]
     Active Substance: REGORAFENIB
     Indication: COLORECTAL CANCER METASTATIC
     Dosage: 160 MG, DAILY
     Route: 048
     Dates: start: 20140108, end: 20140128
  6. ISOTONIC [Concomitant]
     Dosage: 100 CC
     Dates: start: 20140220
  7. CONTRAMAL [Concomitant]
     Active Substance: TRAMADOL HYDROCHLORIDE
     Indication: DECREASED APPETITE
     Dosage: 100MG DAILY
     Route: 042
     Dates: start: 20140220, end: 20140223
  8. ALDOLAN [Concomitant]
     Dosage: 100 MG AMP (1PC)
     Dates: start: 20140221
  9. REGORAFENIB [Suspect]
     Active Substance: REGORAFENIB
     Indication: COLORECTAL CANCER METASTATIC
     Dosage: 160MG, DAILY
     Route: 048
     Dates: start: 20140206, end: 20140214
  10. ENSURE [MINERALS NOS,VITAMINS NOS] [Concomitant]
     Indication: NUTRITIONAL SUPPLEMENTATION
     Dosage: 3 DF, DAILY
     Route: 048
     Dates: start: 20140127
  11. OMEPRAZOL [Concomitant]
     Active Substance: OMEPRAZOLE
     Dosage: UNK
     Dates: start: 20140220

REACTIONS (4)
  - Embolism [Fatal]
  - Decreased appetite [Recovered/Resolved]
  - Decreased appetite [None]
  - Decreased appetite [Not Recovered/Not Resolved]

NARRATIVE: CASE EVENT DATE: 20140121
